FAERS Safety Report 7577137-1 (Version None)
Quarter: 2011Q2

REPORT INFORMATION
  Report Type: 
  Country: None (occurrence: None)
  Receive Date: 20110628
  Receipt Date: 20110128
  Transmission Date: 20111010
  Serious: Yes (Hospitalization)
  Sender: FDA-Public Use
  Company Number: US-BAYER-201035788NA

PATIENT
  Sex: Female

DRUGS (14)
  1. YAZ [Suspect]
     Indication: ACNE
     Dosage: 1 DF, ONCE
     Route: 048
     Dates: start: 20060101, end: 20080101
  2. YASMIN [Suspect]
     Indication: ACNE
     Dosage: 1 DF, ONCE
     Route: 048
     Dates: start: 20050101, end: 20060530
  3. YAZ [Suspect]
     Indication: MENORRHAGIA
  4. NAPROXEN (ALEVE) [Concomitant]
  5. ANAPROX [Concomitant]
     Indication: DYSMENORRHOEA
     Dosage: 1 DF, UNK
  6. DROSPIRENONE AND ETHINYL ESTRADIOL [Suspect]
     Indication: ACNE
     Dosage: 1 DF, ONCE
     Route: 048
     Dates: start: 20050101, end: 20080101
  7. METFORMIN HCL [Concomitant]
     Dosage: 1 DF, UNK
  8. DROSPIRENONE AND ETHINYL ESTRADIOL [Suspect]
     Indication: MENORRHAGIA
  9. NAPROXEN [Concomitant]
     Indication: MUSCLE SPASMS
     Dosage: UNK
     Dates: start: 20080101
  10. ALBUTEROL INHALER [Concomitant]
     Indication: ASTHMA
  11. ZANTAC [Concomitant]
  12. YASMIN [Suspect]
     Indication: MENORRHAGIA
  13. MOTRIN [Concomitant]
  14. MIDOL IB [Concomitant]

REACTIONS (5)
  - VOMITING [None]
  - CHOLECYSTITIS CHRONIC [None]
  - GALLBLADDER DISORDER [None]
  - NAUSEA [None]
  - ABDOMINAL PAIN [None]
